FAERS Safety Report 18098480 (Version 3)
Quarter: 2020Q3

REPORT INFORMATION
  Report Type: Report from Study
  Country: ES (occurrence: ES)
  Receive Date: 20200731
  Receipt Date: 20200928
  Transmission Date: 20201103
  Serious: Yes (Other)
  Sender: FDA-Public Use
  Company Number: ES-TEVA-2020-ES-1808027

PATIENT
  Age: 64 Year
  Sex: Male

DRUGS (1)
  1. COPAXONE [Suspect]
     Active Substance: GLATIRAMER ACETATE
     Indication: RELAPSING-REMITTING MULTIPLE SCLEROSIS
     Route: 058
     Dates: start: 20150818

REACTIONS (8)
  - Gait disturbance [Recovering/Resolving]
  - Feeling hot [Recovering/Resolving]
  - Tachycardia [Recovering/Resolving]
  - Near death experience [Recovering/Resolving]
  - Immediate post-injection reaction [Recovering/Resolving]
  - Headache [Recovering/Resolving]
  - Vertigo [Not Recovered/Not Resolved]
  - Pain in extremity [Recovering/Resolving]

NARRATIVE: CASE EVENT DATE: 20200113
